FAERS Safety Report 8965688 (Version 1)
Quarter: 2012Q4

REPORT INFORMATION
  Report Type: Spontaneous
  Country: US (occurrence: None)
  Receive Date: 20121212
  Receipt Date: 20121212
  Transmission Date: 20130627
  Serious: Yes (Other)
  Sender: FDA-Public Use
  Company Number: None

PATIENT
  Age: 34 Year
  Sex: Male
  Weight: 117.94 kg

DRUGS (2)
  1. DULCOLAX -BISACODYL USP- 10 MG BOEHRINGER INGELHEIM [Suspect]
     Indication: OPIOID INDUCED CONSTIPATION
     Dates: start: 20121211, end: 20121211
  2. DILAUDID [Concomitant]

REACTIONS (5)
  - Burning sensation [None]
  - Dysuria [None]
  - Palpitations [None]
  - Arthralgia [None]
  - Hyperhidrosis [None]
